FAERS Safety Report 9612577 (Version 3)
Quarter: 2013Q4

REPORT INFORMATION
  Report Type: Spontaneous
  Country: GR (occurrence: GR)
  Receive Date: 20131010
  Receipt Date: 20131016
  Transmission Date: 20140711
  Serious: Yes (Other)
  Sender: FDA-Public Use
  Company Number: PHHY2013GR112724

PATIENT
  Age: 9 Year
  Sex: Female

DRUGS (2)
  1. TRILEPTAL [Suspect]
     Indication: CONVULSION
     Dosage: 2 ML TWICE A DAY
     Route: 048
     Dates: start: 20130926, end: 20131001
  2. KEPPRA [Concomitant]
     Indication: CONVULSION
     Dosage: UNK UKN, UNK

REACTIONS (5)
  - Thermal burn [Recovered/Resolved]
  - Crying [Unknown]
  - Eating disorder [Unknown]
  - Injection site reaction [Unknown]
  - Lethargy [Recovered/Resolved]
